FAERS Safety Report 5069346-0 (Version None)
Quarter: 2006Q3

REPORT INFORMATION
  Report Type: 
  Country: None (occurrence: None)
  Receive Date: 20060714
  Receipt Date: 20060329
  Transmission Date: 20061208
  Serious: No
  Sender: FDA-Public Use
  Company Number: 2006SP001435

PATIENT
  Age: 85 Year
  Sex: Male
  Weight: 90.7194 kg

DRUGS (16)
  1. LUNESTA [Suspect]
     Indication: INSOMNIA
     Dosage: SEE IMAGE
     Route: 048
     Dates: start: 20060201, end: 20060301
  2. LUNESTA [Suspect]
     Indication: INSOMNIA
     Dosage: SEE IMAGE
     Route: 048
     Dates: start: 20060301
  3. AMBIEN [Concomitant]
  4. NADOLOL [Concomitant]
  5. AVAPRO [Concomitant]
  6. VASOTEC [Concomitant]
  7. TERAZOSIN HCL [Concomitant]
  8. TRIAMTERENE [Concomitant]
  9. PRAVACHOL [Concomitant]
  10. TIAZAC [Concomitant]
  11. ZETIA [Concomitant]
  12. ASPIRIN [Concomitant]
  13. NIACIN [Concomitant]
  14. FOLIC ACID [Concomitant]
  15. COD-LIVER OIL [Concomitant]
  16. MULTIVITAMIN [Concomitant]

REACTIONS (2)
  - DYSGEUSIA [None]
  - ELECTROCARDIOGRAM T WAVE AMPLITUDE INCREASED [None]
